FAERS Safety Report 8798949 (Version 2)
Quarter: 2012Q4

REPORT INFORMATION
  Report Type: 
  Country: TN (occurrence: TN)
  Receive Date: 20120920
  Receipt Date: 20121002
  Transmission Date: 20130627
  Serious: Yes (Death)
  Sender: FDA-Public Use
  Company Number: TN-SANOFI-AVENTIS-2012SA067033

PATIENT
  Age: 53 Year
  Sex: Female

DRUGS (6)
  1. PLAVIX [Suspect]
     Indication: MYOCARDIAL INFARCTION
     Route: 048
     Dates: start: 20120428, end: 20120513
  2. PLAVIX [Suspect]
     Indication: DRUG-ELUTING CORONARY STENT PLACEMENT
     Route: 048
     Dates: start: 20120428, end: 20120513
  3. ASPIRIN [Concomitant]
     Route: 048
     Dates: end: 20120513
  4. HYPOTEN [Concomitant]
     Route: 048
     Dates: end: 20120512
  5. CORVASAL [Concomitant]
     Route: 048
     Dates: end: 20120513
  6. LESCOL [Concomitant]
     Route: 048
     Dates: end: 20120513

REACTIONS (4)
  - Myocardial infarction [Fatal]
  - Condition aggravated [Fatal]
  - Device occlusion [Fatal]
  - Chest pain [Fatal]
